FAERS Safety Report 6146339-3 (Version None)
Quarter: 2009Q2

REPORT INFORMATION
  Report Type: 
  Country: None (occurrence: None)
  Receive Date: 20090407
  Receipt Date: 20090327
  Transmission Date: 20091009
  Serious: Yes (Hospitalization)
  Sender: FDA-Public Use
  Company Number: CO-JNJFOC-20090307467

PATIENT
  Age: 39 Year
  Sex: Male

DRUGS (5)
  1. REMICADE [Suspect]
     Dosage: 4TH DOSE
     Route: 042
  2. REMICADE [Suspect]
     Indication: RHEUMATOID ARTHRITIS
     Route: 042
  3. METHOTREXATE [Concomitant]
  4. ACETAMINOPHEN [Concomitant]
  5. FOLIC ACID [Concomitant]

REACTIONS (1)
  - DISSEMINATED TUBERCULOSIS [None]
